FAERS Safety Report 7155940-X (Version None)
Quarter: 2010Q4

REPORT INFORMATION
  Report Type: 
  Country: None (occurrence: None)
  Receive Date: 20101214
  Receipt Date: 20101129
  Transmission Date: 20110411
  Serious: Yes (Other)
  Sender: FDA-Public Use
  Company Number: PHHY2010FR82303

PATIENT
  Sex: Male

DRUGS (8)
  1. AFINITOR [Suspect]
     Indication: RENAL CANCER
     Dosage: 1 DF, QD
     Dates: start: 20100114, end: 20100415
  2. AFINITOR [Suspect]
     Dosage: 1 DF, QD
     Dates: start: 20100501, end: 20100802
  3. WYTENS [Concomitant]
     Dosage: UNK
     Dates: end: 20100501
  4. COVERSYL [Concomitant]
     Dosage: 2.5 MG, QD
     Dates: start: 20100501
  5. LERCANIDIPINE [Concomitant]
     Dosage: 20 MG, QD
  6. PREVISCAN [Concomitant]
     Dosage: 20 MG DAILY
  7. CRESTOR [Concomitant]
     Dosage: 10 MG, QD
  8. ALLOPURINOL [Concomitant]

REACTIONS (14)
  - ANTIANGIOGENIC THERAPY [None]
  - DERMATITIS [None]
  - DIABETES MELLITUS [None]
  - ECZEMA [None]
  - HYPERTENSION [None]
  - LEUKOCYTOCLASTIC VASCULITIS [None]
  - NEPHROPATHY TOXIC [None]
  - NEPHROTIC SYNDROME [None]
  - OEDEMA PERIPHERAL [None]
  - RENAL FAILURE [None]
  - SKIN LESION [None]
  - SKIN NECROSIS [None]
  - ULCER [None]
  - VASCULITIS [None]
